FAERS Safety Report 10297039 (Version 3)
Quarter: 2014Q3

REPORT INFORMATION
  Report Type: Spontaneous
  Country: US (occurrence: US)
  Receive Date: 20140711
  Receipt Date: 20140820
  Transmission Date: 20150326
  Serious: Yes (Other)
  Sender: FDA-Public Use
  Company Number: US-009507513-1406USA012534

PATIENT
  Age: 24 Year
  Sex: Female
  Weight: 65.31 kg

DRUGS (1)
  1. NEXPLANON [Suspect]
     Active Substance: ETONOGESTREL
     Indication: CONTRACEPTION
     Dosage: 1 DF, UNK
     Route: 059
     Dates: start: 201310, end: 20140720

REACTIONS (10)
  - Weight increased [Not Recovered/Not Resolved]
  - Device deployment issue [Recovered/Resolved]
  - Device dislocation [Recovered/Resolved]
  - Menstruation irregular [Not Recovered/Not Resolved]
  - Surgery [Recovered/Resolved]
  - Device difficult to use [Recovered/Resolved]
  - Medical device complication [Recovered/Resolved]
  - General anaesthesia [Recovered/Resolved]
  - Device kink [Recovered/Resolved]
  - Device difficult to use [Recovered/Resolved]

NARRATIVE: CASE EVENT DATE: 2013
